FAERS Safety Report 5481550-6 (Version None)
Quarter: 2007Q4

REPORT INFORMATION
  Report Type: 
  Country: None (occurrence: None)
  Receive Date: 20071010
  Receipt Date: 20071002
  Transmission Date: 20080405
  Serious: Yes (Life-Threatening)
  Sender: FDA-Public Use
  Company Number: AU-MERCK-0710AUS00007

PATIENT
  Age: 68 Year
  Sex: Female
  Weight: 62 kg

DRUGS (13)
  1. FOSAMAX [Suspect]
     Route: 048
     Dates: end: 20030424
  2. FLURBIPROFEN [Concomitant]
     Route: 047
     Dates: start: 20030417
  3. RANITIDINE HYDROCHLORIDE [Concomitant]
     Route: 065
     Dates: start: 20030424
  4. SUCRALFATE [Concomitant]
     Route: 048
     Dates: start: 20030424
  5. DEXAMETHASONE [Concomitant]
     Route: 047
  6. ASPIRIN [Suspect]
     Indication: CARDIAC FAILURE CONGESTIVE
     Route: 048
     Dates: end: 20030425
  7. ESOMEPRAZOLE MAGNESIUM [Suspect]
     Route: 065
     Dates: start: 20030424
  8. ISOSORBIDE MONONITRATE [Suspect]
     Indication: CARDIAC FAILURE CONGESTIVE
     Route: 048
  9. FOSINOPRIL SODIUM [Suspect]
     Indication: CARDIAC FAILURE CONGESTIVE
     Route: 048
     Dates: end: 20030425
  10. FUROSEMIDE [Suspect]
     Indication: CARDIAC FAILURE CONGESTIVE
     Route: 065
     Dates: end: 20030425
  11. ALLOPURINOL [Suspect]
     Route: 048
     Dates: end: 20030425
  12. INDOMETHACIN [Suspect]
     Route: 065
     Dates: end: 20030425
  13. OMEPRAZOLE [Suspect]
     Route: 065
     Dates: end: 20030424

REACTIONS (3)
  - EOSINOPHILIA [None]
  - METABOLIC ACIDOSIS [None]
  - RENAL FAILURE ACUTE [None]
